FAERS Safety Report 4990729-9 (Version None)
Quarter: 2006Q2

REPORT INFORMATION
  Report Type: 
  Country: None (occurrence: None)
  Receive Date: 20060427
  Receipt Date: 20060413
  Transmission Date: 20061013
  Serious: Yes (Hospitalization)
  Sender: FDA-Public Use
  Company Number: 2006PV012024

PATIENT
  Age: 71 Year
  Sex: Female
  Weight: 74.3899 kg

DRUGS (11)
  1. BYETTA [Suspect]
     Indication: DIABETES MELLITUS NON-INSULIN-DEPENDENT
     Dosage: 5 MCG; BID; SC 10 MCG; BID; SC
     Route: 058
     Dates: start: 20050701, end: 20050701
  2. BYETTA [Suspect]
     Indication: DIABETES MELLITUS NON-INSULIN-DEPENDENT
     Dosage: 5 MCG; BID; SC 10 MCG; BID; SC
     Route: 058
     Dates: start: 20050701
  3. METFORMIN [Concomitant]
  4. GLIPIZIDE [Concomitant]
  5. COZAAR [Concomitant]
  6. TRICOR [Concomitant]
  7. NIASPAN [Concomitant]
  8. TOPROL-XL [Concomitant]
  9. SYNTHROID [Concomitant]
  10. LIPITOR [Concomitant]
  11. ASPIRIN [Concomitant]

REACTIONS (7)
  - BLOOD GLUCOSE INCREASED [None]
  - DIARRHOEA [None]
  - HYPOGLYCAEMIA [None]
  - INCORRECT DOSE ADMINISTERED [None]
  - INJECTION SITE NODULE [None]
  - NAUSEA [None]
  - PHARMACEUTICAL PRODUCT COMPLAINT [None]
